FAERS Safety Report 11191664 (Version 1)
Quarter: 2015Q2

REPORT INFORMATION
  Report Type: Spontaneous
  Country: US (occurrence: US)
  Receive Date: 20150616
  Receipt Date: 20150616
  Transmission Date: 20150821
  Serious: No
  Sender: FDA-Public Use
  Company Number: US-TEVA-570687ACC

PATIENT
  Age: 19 Year
  Sex: Female
  Weight: 84.44 kg

DRUGS (3)
  1. TRI-SPRINTEC [Concomitant]
     Active Substance: ETHINYL ESTRADIOL\NORGESTIMATE
     Indication: CONTRACEPTION
     Dosage: UNKNOWN FORM STRENGTH
     Route: 065
  2. PLAN B ONE-STEP [Suspect]
     Active Substance: LEVONORGESTREL
     Indication: POST COITAL CONTRACEPTION
     Dosage: 1.5 MILLIGRAM DAILY;
     Route: 048
     Dates: start: 20150606, end: 20150606
  3. PLAN B ONE-STEP [Suspect]
     Active Substance: LEVONORGESTREL
     Dosage: 1.5 MILLIGRAM DAILY;
     Route: 048
     Dates: start: 20150606, end: 20150606

REACTIONS (3)
  - Intentional product misuse [Unknown]
  - Headache [Not Recovered/Not Resolved]
  - Dysmenorrhoea [Not Recovered/Not Resolved]

NARRATIVE: CASE EVENT DATE: 20150606
